FAERS Safety Report 11934680 (Version 1)
Quarter: 2016Q1

REPORT INFORMATION
  Report Type: Spontaneous
  Country: CA (occurrence: CA)
  Receive Date: 20160121
  Receipt Date: 20160121
  Transmission Date: 20160526
  Serious: Yes (Life-Threatening)
  Sender: FDA-Public Use
  Company Number: CA-TEVA-627282ACC

PATIENT
  Age: 74 Year
  Sex: Male

DRUGS (2)
  1. BUPROPION. [Suspect]
     Active Substance: BUPROPION
     Indication: DEPRESSION
     Dosage: 300 MILLIGRAM DAILY;
     Route: 048
  2. EFFEXOR XR [Concomitant]
     Active Substance: VENLAFAXINE HYDROCHLORIDE

REACTIONS (4)
  - Product substitution issue [Recovered/Resolved]
  - Somnolence [Recovered/Resolved]
  - Depression [Recovered/Resolved]
  - Feelings of worthlessness [Recovered/Resolved]
